FAERS Safety Report 6340515-2 (Version None)
Quarter: 2009Q3

REPORT INFORMATION
  Report Type: 
  Country: None (occurrence: None)
  Receive Date: 20090904
  Receipt Date: 20090831
  Transmission Date: 20100115
  Serious: No
  Sender: FDA-Public Use
  Company Number: US-JNJFOC-20090900914

PATIENT
  Sex: Female
  Weight: 98.88 kg

DRUGS (4)
  1. DURAGESIC-100 [Suspect]
     Indication: BACK PAIN
     Route: 062
  2. VICODIN [Concomitant]
     Indication: BREAKTHROUGH PAIN
     Route: 048
  3. AMBIEN [Concomitant]
     Indication: SLEEP DISORDER
     Dosage: 1 IN PM
     Route: 048
  4. LIDODERM [Concomitant]
     Indication: PAIN
     Route: 065

REACTIONS (4)
  - FIBROMYALGIA [None]
  - HYPERHIDROSIS [None]
  - PRODUCT QUALITY ISSUE [None]
  - WRONG TECHNIQUE IN DRUG USAGE PROCESS [None]
